FAERS Safety Report 9607906 (Version 1)
Quarter: 2013Q4

REPORT INFORMATION
  Report Type: Spontaneous
  Country: US (occurrence: None)
  Receive Date: 20131007
  Receipt Date: 20131007
  Transmission Date: 20140711
  Serious: Yes (Other)
  Sender: FDA-Public Use
  Company Number: 2013P1019732

PATIENT
  Age: 14 Year
  Sex: Male

DRUGS (1)
  1. OXTELLAR XR [Suspect]
     Indication: COMPLEX PARTIAL SEIZURES
     Dates: start: 201307

REACTIONS (5)
  - Feeling abnormal [None]
  - Headache [None]
  - Blood sodium decreased [None]
  - Feeling cold [None]
  - Convulsion [None]
